FAERS Safety Report 24566532 (Version 1)
Quarter: 2024Q4

REPORT INFORMATION
  Report Type: Report from Study
  Country: PT (occurrence: PT)
  Receive Date: 20241030
  Receipt Date: 20241030
  Transmission Date: 20250115
  Serious: Yes (Other)
  Sender: ABBVIE
  Company Number: PT-ABBVIE-5974589

PATIENT
  Age: 82 Year
  Sex: Male

DRUGS (4)
  1. CARBIDOPA\LEVODOPA [Suspect]
     Active Substance: CARBIDOPA\LEVODOPA
     Indication: Parkinson^s disease
     Dosage: 20 MG + 5 MG,  MORN10CC;MAINT:2.6CC/H;EXTRA:1CC
     Route: 050
     Dates: start: 20241015, end: 20241023
  2. CARBIDOPA\LEVODOPA [Suspect]
     Active Substance: CARBIDOPA\LEVODOPA
  3. DONEPEZIL [Concomitant]
     Active Substance: DONEPEZIL
     Indication: Product used for unknown indication
     Dosage: 1 TABLET, FORM STRENGTH: 5 MG, AT BEDTIME, BEFORE DUODOPA
  4. BENSERAZIDE HYDROCHLORIDE\LEVODOPA [Concomitant]
     Active Substance: BENSERAZIDE HYDROCHLORIDE\LEVODOPA
     Indication: Product used for unknown indication
     Dosage: 1 TABLET, AT BEDTIME,  BEFORE DUODOPA

REACTIONS (12)
  - Orchitis [Recovered/Resolved]
  - Inflammatory marker increased [Recovered/Resolved]
  - Scrotal inflammation [Recovered/Resolved]
  - Pyrexia [Recovered/Resolved]
  - Unintentional medical device removal [Recovered/Resolved]
  - Agitation [Recovered/Resolved]
  - Oxygen saturation decreased [Recovered/Resolved]
  - Aggression [Recovered/Resolved]
  - Pneumonia [Not Recovered/Not Resolved]
  - General physical health deterioration [Unknown]
  - Sepsis [Recovered/Resolved]
  - Device kink [Unknown]

NARRATIVE: CASE EVENT DATE: 20241001
